FAERS Safety Report 7918016 (Version 3)
Quarter: 2013Q1

REPORT INFORMATION
  Report Type: Spontaneous
  Country: US (occurrence: US)
  Receive Date: 20110428
  Receipt Date: 20130102
  Transmission Date: 20140127
  Serious: No
  Sender: FDA-Public Use
  Company Number: US-ASTRAZENECA-2010SE40007

PATIENT
  Age: 55 Year
  Sex: Female

DRUGS (2)
  1. ZOMIG NASAL SPRAY [Suspect]
     Indication: MIGRAINE
     Route: 045
  2. ZOMIG NASAL SPRAY [Suspect]
     Indication: MIGRAINE
     Dosage: ONE SPRAY AS NEEDED
     Route: 045

REACTIONS (5)
  - Migraine [Unknown]
  - Malaise [Unknown]
  - Pain [Unknown]
  - Vomiting [Unknown]
  - Drug dose omission [Unknown]
